FAERS Safety Report 24166969 (Version 1)
Quarter: 2024Q3

REPORT INFORMATION
  Report Type: Spontaneous
  Country: US (occurrence: US)
  Receive Date: 20240802
  Receipt Date: 20240802
  Transmission Date: 20241016
  Serious: No
  Sender: ENDO
  Company Number: ENDB23-02886

PATIENT
  Sex: Male
  Weight: 95.238 kg

DRUGS (26)
  1. EDEX [Suspect]
     Active Substance: ALPROSTADIL
     Indication: Product used for unknown indication
     Dosage: 40 ?G, UNKNOWN STARTED AFTER PROSTATE SURGERY
     Route: 065
  2. EDEX [Suspect]
     Active Substance: ALPROSTADIL
     Indication: Product used for unknown indication
     Dosage: 40 ?G, UNKNOWN STARTED AFTER PROSTATE SURGERY
     Route: 065
  3. EDEX [Suspect]
     Active Substance: ALPROSTADIL
     Indication: Product used for unknown indication
     Dosage: 40 ?G, UNKNOWN STARTED AFTER PROSTATE SURGERY
     Route: 065
  4. EDEX [Suspect]
     Active Substance: ALPROSTADIL
     Indication: Product used for unknown indication
     Dosage: 40 ?G, UNKNOWN STARTED AFTER PROSTATE SURGERY
     Route: 065
  5. EDEX [Suspect]
     Active Substance: ALPROSTADIL
     Indication: Product used for unknown indication
     Dosage: 40 ?G, UNKNOWN STARTED AFTER PROSTATE SURGERY
     Route: 065
  6. EDEX [Suspect]
     Active Substance: ALPROSTADIL
     Dosage: 40 ?G, UNKNOWN, DID NOT WORK
     Route: 065
  7. EDEX [Suspect]
     Active Substance: ALPROSTADIL
     Dosage: 40 ?G, UNKNOWN, DID NOT WORK
     Route: 065
  8. EDEX [Suspect]
     Active Substance: ALPROSTADIL
     Dosage: 40 ?G, UNKNOWN, DID NOT WORK
     Route: 065
  9. EDEX [Suspect]
     Active Substance: ALPROSTADIL
     Dosage: 40 ?G, UNKNOWN, DID NOT WORK
     Route: 065
  10. EDEX [Suspect]
     Active Substance: ALPROSTADIL
     Dosage: 40 ?G, UNKNOWN, DID NOT WORK
     Route: 065
  11. EDEX [Suspect]
     Active Substance: ALPROSTADIL
     Dosage: 40 ?G, UNKNOWN, DID NOT WORK
     Route: 065
  12. EDEX [Suspect]
     Active Substance: ALPROSTADIL
     Dosage: 40 ?G, UNKNOWN, DID NOT WORK
     Route: 065
  13. EDEX [Suspect]
     Active Substance: ALPROSTADIL
     Dosage: 40 ?G, UNKNOWN, DID NOT WORK
     Route: 065
  14. EDEX [Suspect]
     Active Substance: ALPROSTADIL
     Dosage: 40 ?G, UNKNOWN, DID NOT WORK
     Route: 065
  15. EDEX [Suspect]
     Active Substance: ALPROSTADIL
     Dosage: 40 ?G, UNKNOWN, DID NOT WORK
     Route: 065
  16. EDEX [Suspect]
     Active Substance: ALPROSTADIL
     Dosage: 40 ?G, UNKNOWN, DID NOT WORK
     Route: 065
  17. EDEX [Suspect]
     Active Substance: ALPROSTADIL
     Dosage: 40 ?G, UNKNOWN, DID NOT WORK
     Route: 065
  18. EDEX [Suspect]
     Active Substance: ALPROSTADIL
     Dosage: 40 ?G, UNKNOWN, DID NOT WORK
     Route: 065
  19. EDEX [Suspect]
     Active Substance: ALPROSTADIL
     Dosage: 40 ?G, UNKNOWN, DID NOT WORK
     Route: 065
  20. EDEX [Suspect]
     Active Substance: ALPROSTADIL
     Dosage: 40 ?G, UNKNOWN, DID NOT WORK
     Route: 065
  21. EDEX [Suspect]
     Active Substance: ALPROSTADIL
     Dosage: 40 ?G, UNKNOWN, FOURTH TUBE WITH UNKNOWN, UNKNOWN BATCH NUMBER
     Route: 065
  22. EDEX [Suspect]
     Active Substance: ALPROSTADIL
     Dosage: 40 ?G, UNKNOWN, FOURTH TUBE WITH UNKNOWN, UNKNOWN BATCH NUMBER
     Route: 065
  23. EDEX [Suspect]
     Active Substance: ALPROSTADIL
     Dosage: 40 ?G, UNKNOWN, FOURTH TUBE WITH UNKNOWN, UNKNOWN BATCH NUMBER
     Route: 065
  24. EDEX [Suspect]
     Active Substance: ALPROSTADIL
     Dosage: 40 ?G, UNKNOWN, FOURTH TUBE WITH UNKNOWN, UNKNOWN BATCH NUMBER
     Route: 065
  25. EDEX [Suspect]
     Active Substance: ALPROSTADIL
     Dosage: 40 ?G, UNKNOWN, FOURTH TUBE WITH UNKNOWN, UNKNOWN BATCH NUMBER
     Route: 065
  26. UNSPECIFIED INGREDIENT [Concomitant]
     Active Substance: UNSPECIFIED INGREDIENT
     Indication: Product used for unknown indication
     Dosage: UNK UNKNOWN, UNKNOWN
     Route: 065

REACTIONS (2)
  - Hypertension [Recovering/Resolving]
  - Drug ineffective [Unknown]
